FAERS Safety Report 7834686-6 (Version None)
Quarter: 2011Q4

REPORT INFORMATION
  Report Type: 
  Country: None (occurrence: None)
  Receive Date: 20111024
  Receipt Date: 20111017
  Transmission Date: 20120403
  Serious: Yes (Hospitalization)
  Sender: FDA-Public Use
  Company Number: ES-ABBOTT-11P-144-0857132-00

PATIENT
  Age: 64 Year
  Sex: Female

DRUGS (1)
  1. HUMIRA [Suspect]
     Indication: PSORIASIS

REACTIONS (9)
  - ANGIOMYOLIPOMA [None]
  - PULMONARY EMBOLISM [None]
  - RENAL ATROPHY [None]
  - ARTERIAL THROMBOSIS [None]
  - LUNG NEOPLASM [None]
  - OEDEMA PERIPHERAL [None]
  - PARAESTHESIA [None]
  - COUGH [None]
  - MUSCULOSKELETAL PAIN [None]
